FAERS Safety Report 14694187 (Version 1)
Quarter: 2018Q1

REPORT INFORMATION
  Report Type: Spontaneous
  Country: FR (occurrence: FR)
  Receive Date: 20180329
  Receipt Date: 20180329
  Transmission Date: 20180509
  Serious: Yes (Hospitalization)
  Sender: FDA-Public Use
  Company Number: FR-PFIZER INC-2018123539

PATIENT
  Age: 21 Year
  Sex: Female
  Weight: 85 kg

DRUGS (2)
  1. CYTOTEC [Suspect]
     Active Substance: MISOPROSTOL
     Indication: ABORTION INDUCED
     Dosage: 400 UG, 1X/DAY
     Route: 048
     Dates: start: 20180218, end: 20180218
  2. MIFEGYNE [Suspect]
     Active Substance: MIFEPRISTONE
     Indication: ABORTION INDUCED
     Dosage: 200 MG, UNK
     Route: 048
     Dates: start: 20180216, end: 20180216

REACTIONS (4)
  - Hemiparesis [Recovering/Resolving]
  - Headache [Recovering/Resolving]
  - Product use in unapproved indication [Recovered/Resolved]
  - Vision blurred [Recovering/Resolving]

NARRATIVE: CASE EVENT DATE: 20180220
